FAERS Safety Report 11381599 (Version 1)
Quarter: 2015Q3

REPORT INFORMATION
  Report Type: Report from Study
  Country: DE (occurrence: DE)
  Receive Date: 20150814
  Receipt Date: 20150814
  Transmission Date: 20151125
  Serious: Yes (Hospitalization)
  Sender: FDA-Public Use
  Company Number: DE-ABBVIE-15K-062-1430711-00

PATIENT
  Sex: Male
  Weight: 47.5 kg

DRUGS (1)
  1. HUMIRA [Suspect]
     Active Substance: ADALIMUMAB
     Indication: CROHN^S DISEASE
     Route: 058

REACTIONS (8)
  - Central venous catheterisation [Recovered/Resolved]
  - Staphylococcal sepsis [Recovered/Resolved]
  - Device related sepsis [Recovered/Resolved]
  - Device related infection [Recovered/Resolved]
  - General physical health deterioration [Unknown]
  - Staphylococcal sepsis [Recovered/Resolved]
  - Staphylococcal sepsis [Recovering/Resolving]
  - Device related infection [Recovering/Resolving]

NARRATIVE: CASE EVENT DATE: 20130714
